FAERS Safety Report 10229350 (Version 1)
Quarter: 2014Q2

REPORT INFORMATION
  Report Type: Spontaneous
  Country: CN (occurrence: CN)
  Receive Date: 20140611
  Receipt Date: 20140611
  Transmission Date: 20141212
  Serious: Yes (Other)
  Sender: FDA-Public Use
  Company Number: CN-PFIZER INC-2014154657

PATIENT
  Age: 37 Year
  Sex: Female

DRUGS (2)
  1. PHARMORUBICIN [Suspect]
     Indication: BREAST CANCER
     Dosage: 50 MG, 1X/DAY
     Route: 041
     Dates: start: 20130621, end: 20130621
  2. FLUOROURACIL [Suspect]
     Indication: BREAST CANCER
     Dosage: 750 MG, 1X/DAY
     Route: 041
     Dates: start: 20130621, end: 20130621

REACTIONS (3)
  - Dizziness [Recovering/Resolving]
  - Hypoaesthesia [Recovering/Resolving]
  - Muscle rigidity [Recovering/Resolving]
